FAERS Safety Report 5013557-7 (Version None)
Quarter: 2006Q2

REPORT INFORMATION
  Report Type: 
  Country: None (occurrence: None)
  Receive Date: 20060525
  Receipt Date: 20060509
  Transmission Date: 20061013
  Serious: Yes (Hospitalization, Other)
  Sender: FDA-Public Use
  Company Number: US200605002163

PATIENT
  Age: 72 Year
  Sex: Male

DRUGS (2)
  1. HUMULIN 70/30 [Suspect]
     Indication: DIABETES MELLITUS
     Dates: start: 20010101
  2. HUMULIN R [Suspect]
     Indication: DIABETES MELLITUS
     Dates: start: 20010101

REACTIONS (3)
  - ABNORMAL DREAMS [None]
  - BLADDER CANCER [None]
  - BLOOD GLUCOSE FLUCTUATION [None]
